FAERS Safety Report 9291620 (Version 1)
Quarter: 2013Q2

REPORT INFORMATION
  Report Type: Spontaneous
  Country: US (occurrence: US)
  Receive Date: 20130515
  Receipt Date: 20130515
  Transmission Date: 20140414
  Serious: No
  Sender: FDA-Public Use
  Company Number: US-009507513-1305USA000947

PATIENT
  Sex: 0

DRUGS (1)
  1. LOTRIMIN ULTRA [Suspect]
     Indication: TINEA INFECTION
     Dosage: UNK, BID
     Route: 061

REACTIONS (2)
  - Inappropriate schedule of drug administration [Unknown]
  - Off label use [Unknown]
